FAERS Safety Report 7096005-5 (Version None)
Quarter: 2010Q4

REPORT INFORMATION
  Report Type: 
  Country: None (occurrence: None)
  Receive Date: 20101111
  Receipt Date: 20080820
  Transmission Date: 20110411
  Serious: No
  Sender: FDA-Public Use
  Company Number: US-KINGPHARMUSA00001-K200800997

PATIENT
  Age: 53 Year
  Sex: Female
  Weight: 72.562 kg

DRUGS (2)
  1. ALTACE [Suspect]
     Indication: HYPERTENSION
     Dosage: 5 MG, QD
     Route: 048
     Dates: start: 20070101
  2. VICKS DAYQUIL SINUS PRESSURE + PAIN RELIEF W/ IBUPROFEN [Suspect]
     Indication: NASOPHARYNGITIS
     Dosage: 2 DOSES QD
     Route: 048
     Dates: start: 20080819, end: 20080820

REACTIONS (2)
  - NASOPHARYNGITIS [None]
  - URTICARIA [None]
